FAERS Safety Report 25523913 (Version 1)
Quarter: 2025Q3

REPORT INFORMATION
  Report Type: Report from Study
  Country: JP (occurrence: JP)
  Receive Date: 20250707
  Receipt Date: 20250707
  Transmission Date: 20251020
  Serious: Yes (Hospitalization)
  Sender: ROCHE
  Company Number: JP-ROCHE-10000328559

PATIENT
  Age: 64 Year
  Sex: Female
  Weight: 47 kg

DRUGS (12)
  1. RITUXAN [Suspect]
     Active Substance: RITUXIMAB
     Indication: Systemic scleroderma
     Route: 042
     Dates: start: 20230217, end: 20230217
  2. RITUXAN [Suspect]
     Active Substance: RITUXIMAB
     Route: 042
     Dates: start: 20230224, end: 20230224
  3. RITUXAN [Suspect]
     Active Substance: RITUXIMAB
     Route: 042
     Dates: start: 20230303, end: 20230303
  4. RITUXAN [Suspect]
     Active Substance: RITUXIMAB
     Route: 042
     Dates: start: 20230310, end: 20230310
  5. RITUXAN [Suspect]
     Active Substance: RITUXIMAB
     Route: 042
     Dates: start: 20230829, end: 20230829
  6. RITUXAN [Suspect]
     Active Substance: RITUXIMAB
     Route: 042
     Dates: start: 20230905, end: 20230905
  7. RITUXAN [Suspect]
     Active Substance: RITUXIMAB
     Route: 042
     Dates: start: 20230913, end: 20230913
  8. RITUXAN [Suspect]
     Active Substance: RITUXIMAB
     Route: 042
     Dates: start: 20230920, end: 20230920
  9. TRACLEER(BOSENTAN HYDRATE) [Concomitant]
     Indication: Systemic scleroderma
     Route: 048
  10. SARPOGRELATE HYDROCHLORIDE [Concomitant]
     Active Substance: SARPOGRELATE HYDROCHLORIDE
     Indication: Systemic scleroderma
     Route: 048
     Dates: end: 20240222
  11. BAKTAR(SULFAMETHOXAZOLE/TRIMETHOPRIM) [Concomitant]
     Indication: Infection prophylaxis
     Route: 048
     Dates: end: 20240222
  12. THYRADIN(DRIED THYROID) [Concomitant]

REACTIONS (2)
  - Pleural effusion [Recovering/Resolving]
  - Renal-limited thrombotic microangiopathy [Not Recovered/Not Resolved]

NARRATIVE: CASE EVENT DATE: 20230905
